FAERS Safety Report 7575304-4 (Version None)
Quarter: 2011Q2

REPORT INFORMATION
  Report Type: 
  Country: None (occurrence: None)
  Receive Date: 20110627
  Receipt Date: 20110617
  Transmission Date: 20111010
  Serious: Yes (Hospitalization)
  Sender: FDA-Public Use
  Company Number: DE-B.I. PHARMACEUTICALS,INC./RIDGEFIELD-2011-DE-03648DE

PATIENT
  Age: 58 Year
  Sex: Female
  Weight: 63 kg

DRUGS (1)
  1. PRADAXA [Suspect]
     Dosage: 220 MG
     Route: 048
     Dates: start: 20101020, end: 20101117

REACTIONS (6)
  - VOMITING [None]
  - HEPATIC ENZYME INCREASED [None]
  - ABDOMINAL PAIN UPPER [None]
  - JAUNDICE [None]
  - ANAEMIA [None]
  - CHOLESTASIS [None]
